FAERS Safety Report 9111383 (Version 1)
Quarter: 2013Q1

REPORT INFORMATION
  Report Type: Spontaneous
  Country: US (occurrence: US)
  Receive Date: 20130219
  Receipt Date: 20130219
  Transmission Date: 20140127
  Serious: No
  Sender: FDA-Public Use
  Company Number: US-BRISTOL-MYERS SQUIBB COMPANY-17098625

PATIENT
  Age: 54 Year
  Sex: Female
  Weight: 68.03 kg

DRUGS (7)
  1. ABATACEPT SUBQ INJECTION 125MG/ML [Suspect]
     Indication: RHEUMATOID ARTHRITIS
     Route: 058
  2. RANITIDINE [Concomitant]
  3. PREMPRO [Concomitant]
  4. LISINOPRIL [Concomitant]
  5. AZATHIOPRINE [Concomitant]
  6. AMOXIL [Concomitant]
  7. ADVIL [Concomitant]

REACTIONS (1)
  - Abdominal pain [Unknown]
